FAERS Safety Report 13023306 (Version 3)
Quarter: 2017Q2

REPORT INFORMATION
  Report Type: Spontaneous
  Country: US (occurrence: US)
  Receive Date: 20161213
  Receipt Date: 20170406
  Transmission Date: 20170830
  Serious: No
  Sender: FDA-Public Use
  Company Number: US-009507513-1611USA011041

PATIENT
  Sex: Female
  Weight: 78.01 kg

DRUGS (5)
  1. VITAMIN D [Concomitant]
     Active Substance: CHOLECALCIFEROL
  2. IBUPROFEN. [Concomitant]
     Active Substance: IBUPROFEN
     Dosage: 800MG, 1 TAB(S) 3 TIMES A DAY
     Route: 048
  3. TYLENOL [Concomitant]
     Active Substance: ACETAMINOPHEN
  4. VITAMINS (UNSPECIFIED) [Concomitant]
     Active Substance: VITAMINS
     Dosage: ONCE A DAY
     Route: 048
  5. NEXPLANON [Suspect]
     Active Substance: ETONOGESTREL
     Indication: CONTRACEPTION
     Dosage: 1 SINGLE ROD LEFT INNER UPPER FOREARM
     Route: 059
     Dates: start: 20160613, end: 20161109

REACTIONS (5)
  - Implant site swelling [Recovered/Resolved]
  - Implant site haemorrhage [Recovered/Resolved]
  - Implant site mass [Unknown]
  - Metrorrhagia [Unknown]
  - Device breakage [Recovered/Resolved]

NARRATIVE: CASE EVENT DATE: 2016
